FAERS Safety Report 6099318-9 (Version None)
Quarter: 2009Q1

REPORT INFORMATION
  Report Type: 
  Country: None (occurrence: None)
  Receive Date: 20090226
  Receipt Date: 20090226
  Transmission Date: 20090719
  Serious: Yes (Hospitalization)
  Sender: FDA-Public Use
  Company Number: None

PATIENT
  Sex: Male
  Weight: 78.6 kg

DRUGS (5)
  1. TEMOZOLOMIDE [Suspect]
     Dosage: 4650 MG
  2. ASPIRIN [Concomitant]
  3. BACTRIM [Concomitant]
  4. DILANTIN [Concomitant]
  5. LIPITOR [Concomitant]

REACTIONS (9)
  - ALANINE AMINOTRANSFERASE INCREASED [None]
  - BLOOD ALKALINE PHOSPHATASE INCREASED [None]
  - DISEASE RECURRENCE [None]
  - HEADACHE [None]
  - HYPOTENSION [None]
  - LIPASE INCREASED [None]
  - LOBAR PNEUMONIA [None]
  - NAUSEA [None]
  - VOMITING [None]
